FAERS Safety Report 20895842 (Version 1)
Quarter: 2022Q2

REPORT INFORMATION
  Report Type: Spontaneous
  Country: JP (occurrence: JP)
  Receive Date: 20220531
  Receipt Date: 20220531
  Transmission Date: 20220721
  Serious: Yes (Hospitalization)
  Sender: FDA-Public Use
  Company Number: JP-ROCHE-3105026

PATIENT
  Age: 46 Year
  Sex: Male
  Weight: 68.6 kg

DRUGS (9)
  1. ACTEMRA [Suspect]
     Active Substance: TOCILIZUMAB
     Indication: Castleman^s disease
     Route: 041
     Dates: start: 20210813, end: 20210929
  2. ACTEMRA [Suspect]
     Active Substance: TOCILIZUMAB
     Route: 041
     Dates: start: 20211013, end: 20211124
  3. ACTEMRA [Suspect]
     Active Substance: TOCILIZUMAB
     Route: 041
     Dates: start: 20211208
  4. CILOSTAZOL [Suspect]
     Active Substance: CILOSTAZOL
     Indication: Product used for unknown indication
     Route: 048
     Dates: end: 202112
  5. PREDONINE [Concomitant]
     Active Substance: PREDNISOLONE
     Route: 065
     Dates: start: 20210805
  6. FAMOTIDINE [Concomitant]
     Active Substance: FAMOTIDINE
     Route: 065
     Dates: start: 20211006
  7. FUROSEMIDE [Concomitant]
     Active Substance: FUROSEMIDE
     Route: 065
     Dates: start: 20210819
  8. SULFAMETHOXAZOLE\TRIMETHOPRIM [Concomitant]
     Active Substance: SULFAMETHOXAZOLE\TRIMETHOPRIM
     Route: 065
     Dates: start: 20210908
  9. SAMSCA [Concomitant]
     Active Substance: TOLVAPTAN
     Route: 065
     Dates: start: 20210925

REACTIONS (4)
  - Pruritus [Unknown]
  - Acute kidney injury [Recovering/Resolving]
  - Eosinophil count increased [Recovered/Resolved]
  - Therapeutic response decreased [Unknown]

NARRATIVE: CASE EVENT DATE: 20211208
